FAERS Safety Report 5912315-6 (Version None)
Quarter: 2008Q4

REPORT INFORMATION
  Report Type: 
  Country: None (occurrence: None)
  Receive Date: 20081008
  Receipt Date: 20081001
  Transmission Date: 20090506
  Serious: Yes (Disabling)
  Sender: FDA-Public Use
  Company Number: B0539537A

PATIENT
  Sex: Male

DRUGS (1)
  1. NICORETTE [Suspect]
     Indication: SMOKING CESSATION THERAPY
     Route: 062
     Dates: start: 20060328

REACTIONS (6)
  - CATAPLEXY [None]
  - HYPOTONIA [None]
  - INSOMNIA [None]
  - MYALGIA [None]
  - NARCOLEPSY [None]
  - NIGHTMARE [None]
